FAERS Safety Report 20693881 (Version 2)
Quarter: 2023Q1

REPORT INFORMATION
  Report Type: Report from Study
  Country: US (occurrence: US)
  Receive Date: 20220411
  Receipt Date: 20230315
  Transmission Date: 20230418
  Serious: No
  Sender: FDA-Public Use
  Company Number: US-Ipsen Biopharmaceuticals, Inc.-2022-09814

PATIENT
  Age: 13 Year
  Sex: Female
  Weight: 31.75 kg

DRUGS (2)
  1. INCRELEX [Suspect]
     Active Substance: MECASERMIN
     Indication: Hypopituitarism
     Dosage: 22 UNITS
     Route: 058
     Dates: start: 201704
  2. INCRELEX [Suspect]
     Active Substance: MECASERMIN
     Indication: Off label use

REACTIONS (8)
  - Depressed mood [Recovering/Resolving]
  - Weight decreased [Recovering/Resolving]
  - Product distribution issue [Unknown]
  - Product dose omission issue [Unknown]
  - Off label use [Unknown]
  - Device use confusion [Unknown]
  - Medication error [Unknown]
  - Product dose omission issue [Unknown]

NARRATIVE: CASE EVENT DATE: 20170401
